FAERS Safety Report 18968346 (Version 1)
Quarter: 2021Q1

REPORT INFORMATION
  Report Type: Other
  Country: IN (occurrence: IN)
  Receive Date: 20210304
  Receipt Date: 20210304
  Transmission Date: 20210420
  Serious: Yes (Other)
  Sender: FDA-Public Use
  Company Number: IN-ROCHE-2780046

PATIENT
  Age: 11 Year
  Sex: Male

DRUGS (16)
  1. MIDAZOLAM. [Concomitant]
     Active Substance: MIDAZOLAM
     Indication: ANAESTHESIA
  2. LORAZEPAM. [Concomitant]
     Active Substance: LORAZEPAM
     Indication: ANAESTHESIA
  3. KETAMINE [Concomitant]
     Active Substance: KETAMINE
  4. CEFTAZIDIME. [Concomitant]
     Active Substance: CEFTAZIDIME
  5. OSELTAMIVIR [Suspect]
     Active Substance: OSELTAMIVIR
     Indication: ENCEPHALITIS VIRAL
     Route: 065
  6. ACYCLOVIR. [Suspect]
     Active Substance: ACYCLOVIR
     Indication: ENCEPHALITIS VIRAL
     Route: 065
  7. FOSPHENYTOIN [Concomitant]
     Active Substance: FOSPHENYTOIN
     Indication: SEIZURE
  8. LEVIPIL [Concomitant]
     Active Substance: LEVETIRACETAM
     Indication: SEIZURE
  9. THIOPENTONE [Concomitant]
     Active Substance: THIOPENTAL SODIUM
     Indication: ANAESTHESIA
  10. PHENYTOIN. [Concomitant]
     Active Substance: PHENYTOIN
  11. VALPROATE [Concomitant]
     Active Substance: VALPROIC ACID
     Indication: SEIZURE
  12. MIDAZOLAM. [Concomitant]
     Active Substance: MIDAZOLAM
     Indication: SEIZURE
  13. FENTANYL. [Concomitant]
     Active Substance: FENTANYL
     Indication: ANAESTHESIA
  14. FLUCONAZOLE. [Concomitant]
     Active Substance: FLUCONAZOLE
  15. PHENOBARBITONE SODIUM [Concomitant]
     Active Substance: PHENOBARBITAL SODIUM
  16. MEROPENEM. [Concomitant]
     Active Substance: MEROPENEM

REACTIONS (1)
  - Hyperkalaemia [Unknown]
